FAERS Safety Report 4327859-0 (Version None)
Quarter: 2004Q1

REPORT INFORMATION
  Report Type: 
  Country: None (occurrence: None)
  Receive Date: 20040325
  Receipt Date: 20040312
  Transmission Date: 20041129
  Serious: Yes (Hospitalization)
  Sender: FDA-Public Use
  Company Number: FABR-10502

PATIENT
  Sex: Male

DRUGS (1)
  1. FABRAZYME [Suspect]
     Dosage: FABRY DISEASE

REACTIONS (1)
  - MENIERE'S DISEASE [None]
